FAERS Safety Report 6659773-X (Version None)
Quarter: 2010Q1

REPORT INFORMATION
  Report Type: 
  Country: None (occurrence: None)
  Receive Date: 20100330
  Receipt Date: 20100326
  Transmission Date: 20100710
  Serious: Yes (Other)
  Sender: FDA-Public Use
  Company Number: GB-MERCK-0912GBR00030

PATIENT
  Age: 57 Year
  Sex: Female

DRUGS (3)
  1. ZOCOR [Suspect]
     Indication: CARDIOVASCULAR EVENT PROPHYLAXIS
     Route: 048
  2. ZOCOR [Suspect]
     Route: 048
  3. ZOCOR [Suspect]
     Route: 048
     Dates: end: 20091203

REACTIONS (6)
  - ABDOMINAL PAIN [None]
  - BREAST CANCER [None]
  - CHILLS [None]
  - DIARRHOEA [None]
  - INAPPROPRIATE SCHEDULE OF DRUG ADMINISTRATION [None]
  - RASH [None]
